FAERS Safety Report 16695325 (Version 2)
Quarter: 2021Q1

REPORT INFORMATION
  Report Type: Spontaneous
  Country: JP (occurrence: JP)
  Receive Date: 20190813
  Receipt Date: 20210322
  Transmission Date: 20210419
  Serious: Yes (Other)
  Sender: FDA-Public Use
  Company Number: JP-JNJFOC-20190629176

PATIENT
  Age: 72 Year

DRUGS (10)
  1. DEXAMETHASONE. [Suspect]
     Active Substance: DEXAMETHASONE
     Dosage: DOSE UNKNOWN
     Route: 065
  2. CALONAL [Concomitant]
     Active Substance: ACETAMINOPHEN
     Dosage: DOSE UNKNOWN
     Route: 065
  3. NEORESTAR [Concomitant]
     Active Substance: CHLORPHENIRAMINE MALEATE
     Dosage: DOSE UNKNOWN
     Route: 065
  4. DARZALEX [Suspect]
     Active Substance: DARATUMUMAB
     Indication: PLASMA CELL MYELOMA
     Dosage: DOSE UNKNOWN
     Route: 041
     Dates: start: 20180529
  5. VELCADE [Suspect]
     Active Substance: BORTEZOMIB
     Indication: PLASMA CELL MYELOMA
     Route: 065
  6. KYPROLIS [Concomitant]
     Active Substance: CARFILZOMIB
     Indication: PLASMA CELL MYELOMA
     Dosage: DOSE UNKNOWN
     Route: 065
  7. DEXAMETHASONE. [Concomitant]
     Active Substance: DEXAMETHASONE
     Dosage: DOSE UNKNOWN
     Route: 065
  8. MONTELUKAST [Concomitant]
     Active Substance: MONTELUKAST SODIUM
     Dosage: DOSE UNKNOWN
     Route: 065
  9. DARZALEX [Suspect]
     Active Substance: DARATUMUMAB
     Dosage: DOSE UNKNOWN
     Route: 041
  10. DEXAMETHASONE. [Suspect]
     Active Substance: DEXAMETHASONE
     Indication: PLASMA CELL MYELOMA
     Route: 065

REACTIONS (10)
  - Neutropenia [Unknown]
  - Chills [Unknown]
  - Leukopenia [Unknown]
  - Anaemia [Unknown]
  - Pneumonia [Unknown]
  - Thrombocytopenia [Unknown]
  - Lymphopenia [Unknown]
  - Pyrexia [Unknown]
  - Infusion related reaction [Unknown]
  - Oxygen saturation decreased [Unknown]
